FAERS Safety Report 9495101 (Version 2)
Quarter: 2013Q4

REPORT INFORMATION
  Report Type: Spontaneous
  Country: US (occurrence: US)
  Receive Date: 20130903
  Receipt Date: 20131008
  Transmission Date: 20140711
  Serious: Yes (Other)
  Sender: FDA-Public Use
  Company Number: US-UCBSA-096099

PATIENT
  Age: 50 Year
  Sex: Female
  Weight: 49.9 kg

DRUGS (10)
  1. LORTAB [Suspect]
     Dates: start: 201211
  2. MAGNESIUM [Suspect]
     Route: 048
     Dates: start: 201211
  3. ASPIRIN [Suspect]
     Dates: start: 201211
  4. CYCLOBENZAPRINE [Suspect]
     Indication: BACK PAIN
     Dates: start: 201211
  5. XANAX [Suspect]
     Indication: ANXIETY
     Dates: start: 201211
  6. METOPROLOL [Suspect]
     Dates: start: 201211
  7. LISINOPRIL [Suspect]
     Dosage: 20 MG DAILY
     Route: 048
     Dates: start: 201211
  8. TORADOL [Suspect]
     Dates: start: 201211
  9. LIPITOR [Suspect]
     Indication: BLOOD CHOLESTEROL INCREASED
     Dates: start: 201211
  10. DILANTIN [Suspect]
     Indication: CONVULSION
     Dates: start: 201211, end: 2013

REACTIONS (5)
  - Convulsion [Unknown]
  - Diarrhoea [Unknown]
  - Drug level decreased [Unknown]
  - Memory impairment [Unknown]
  - Drug ineffective [Unknown]
